FAERS Safety Report 9511195 (Version 1)
Quarter: 2013Q3

REPORT INFORMATION
  Report Type: Spontaneous
  Country: US (occurrence: None)
  Receive Date: 20130909
  Receipt Date: 20130909
  Transmission Date: 20140515
  Serious: Yes (Other)
  Sender: FDA-Public Use
  Company Number: None

PATIENT
  Age: 27 Year
  Sex: Male
  Weight: 86.18 kg

DRUGS (3)
  1. INSULIN PEN [Suspect]
  2. INSULIN [Concomitant]
  3. BG METER AND TEST STRIPS [Concomitant]

REACTIONS (4)
  - Needle issue [None]
  - Injection site rash [None]
  - Injection site discolouration [None]
  - X-ray abnormal [None]
